FAERS Safety Report 5319676-X (Version None)
Quarter: 2007Q2

REPORT INFORMATION
  Report Type: 
  Country: None (occurrence: None)
  Receive Date: 20070501
  Receipt Date: 20070420
  Transmission Date: 20071010
  Serious: Yes (Hospitalization)
  Sender: FDA-Public Use
  Company Number: CERZ-11516

PATIENT
  Age: 55 Year
  Sex: Male
  Weight: 85.5 kg

DRUGS (1)
  1. CEREZYME [Suspect]
     Indication: GAUCHER'S DISEASE
     Dosage: 2500 UNITS Q3WKS IV
     Route: 042
     Dates: start: 19970430

REACTIONS (2)
  - HEPATIC NEOPLASM MALIGNANT [None]
  - METASTASES TO LUNG [None]
